FAERS Safety Report 7001729-1 (Version None)
Quarter: 2010Q3

REPORT INFORMATION
  Report Type: 
  Country: None (occurrence: None)
  Receive Date: 20100920
  Receipt Date: 20100914
  Transmission Date: 20110219
  Serious: Yes (Death, Hospitalization)
  Sender: FDA-Public Use
  Company Number: FR-BAYER-201025048GPV

PATIENT
  Age: 62 Year
  Sex: Male

DRUGS (8)
  1. NEXAVAR [Suspect]
     Indication: HEPATIC NEOPLASM MALIGNANT
     Route: 048
     Dates: start: 20091010, end: 20091030
  2. NEXAVAR [Suspect]
     Route: 048
     Dates: start: 20091101, end: 20091104
  3. NEXAVAR [Suspect]
     Route: 048
     Dates: start: 20091107, end: 20091115
  4. COLCHIMAX [Concomitant]
     Dates: start: 20091130, end: 20091222
  5. STILNOX [Concomitant]
     Dates: start: 20091130, end: 20091215
  6. SPECIAFOLDINE [Concomitant]
     Dates: start: 20091130, end: 20091228
  7. TRIATEC [Concomitant]
     Dates: start: 20091130, end: 20091215
  8. ZYLORIC [Concomitant]
     Dates: start: 20091207, end: 20091228

REACTIONS (5)
  - ASCITES [None]
  - FALL [None]
  - GENERAL PHYSICAL HEALTH DETERIORATION [None]
  - JAUNDICE [None]
  - SYNCOPE [None]
